FAERS Safety Report 9339508 (Version 1)
Quarter: 2013Q2

REPORT INFORMATION
  Report Type: Spontaneous
  Country: US (occurrence: None)
  Receive Date: 20130607
  Receipt Date: 20130607
  Transmission Date: 20140414
  Serious: Yes (Hospitalization)
  Sender: FDA-Public Use
  Company Number: None

PATIENT
  Age: 32 Year
  Sex: Female
  Weight: 122.47 kg

DRUGS (3)
  1. LUPRON DEPOT [Suspect]
     Indication: ENDOMETRIOSIS
     Dosage: 3.75 MG, 1 SHOT, MONTHLY, INJECTION
     Dates: start: 20130322, end: 20130517
  2. NORETHINDRONE [Concomitant]
  3. TERBINAFINE [Concomitant]

REACTIONS (4)
  - Headache [None]
  - Blindness unilateral [None]
  - Dyspnoea [None]
  - Chest pain [None]
